FAERS Safety Report 23585477 (Version 1)
Quarter: 2024Q1

REPORT INFORMATION
  Report Type: Spontaneous
  Country: ES (occurrence: ES)
  Receive Date: 20240301
  Receipt Date: 20240301
  Transmission Date: 20240410
  Serious: Yes (Hospitalization)
  Sender: FDA-Public Use
  Company Number: None

PATIENT
  Age: 56 Year
  Sex: Female

DRUGS (3)
  1. LENALIDOMIDE [Interacting]
     Active Substance: LENALIDOMIDE
     Indication: Plasma cell myeloma
     Dosage: 5 MILLIGRAM, QD
     Route: 048
     Dates: start: 20221216, end: 20230105
  2. BORTEZOMIB [Interacting]
     Active Substance: BORTEZOMIB
     Indication: Plasma cell myeloma
     Dosage: 1.99 MILLIGRAM (1 TOTAL)
     Route: 048
     Dates: start: 20221127, end: 20221226
  3. DEXAMETHASONE [Concomitant]
     Active Substance: DEXAMETHASONE
     Indication: Plasma cell myeloma
     Dosage: 320 MILLIGRAM (1 TOTAL)
     Route: 042
     Dates: start: 20221216, end: 20221227

REACTIONS (2)
  - Enteritis [Recovering/Resolving]
  - Drug interaction [Unknown]

NARRATIVE: CASE EVENT DATE: 20221225
